FAERS Safety Report 9510528 (Version 2)
Quarter: 2013Q4

REPORT INFORMATION
  Report Type: Spontaneous
  Country: US (occurrence: US)
  Receive Date: 20130909
  Receipt Date: 20131205
  Transmission Date: 20140711
  Serious: No
  Sender: FDA-Public Use
  Company Number: US-009507513-1309USA002225

PATIENT
  Sex: Female
  Weight: 79.37 kg

DRUGS (3)
  1. NUVARING [Suspect]
     Indication: CONTRACEPTION
     Dosage: UNK
     Route: 067
     Dates: start: 20060731, end: 200610
  2. ALEVE [Concomitant]
     Indication: HEADACHE
     Dosage: UNK, PRN
     Route: 048
     Dates: start: 2003
  3. TYLENOL [Concomitant]
     Indication: HEADACHE
     Dosage: UNK, PRN
     Route: 048
     Dates: start: 2003

REACTIONS (4)
  - Deep vein thrombosis [Unknown]
  - Migraine [Unknown]
  - Headache [Unknown]
  - Maternal exposure before pregnancy [Recovered/Resolved]
